FAERS Safety Report 8405462-0 (Version None)
Quarter: 2012Q2

REPORT INFORMATION
  Report Type: 
  Country: None (occurrence: None)
  Receive Date: 20120323
  Receipt Date: 20110502
  Transmission Date: 20120825
  Serious: Yes (Hospitalization)
  Sender: FDA-Public Use
  Company Number: 163-21880-11050285

PATIENT
  Age: 76 Year
  Sex: Male
  Weight: 87.9978 kg

DRUGS (2)
  1. REVLIMID [Suspect]
     Indication: MULTIPLE MYELOMA
     Dosage: 10 MG, 1 IN 1 D, PO, 25 MG, 1 IN 1 D, PO
     Route: 048
     Dates: start: 20100901, end: 20110401
  2. REVLIMID [Suspect]
     Indication: MULTIPLE MYELOMA
     Dosage: 10 MG, 1 IN 1 D, PO, 25 MG, 1 IN 1 D, PO
     Route: 048
     Dates: start: 20100801

REACTIONS (1)
  - MUSCULOSKELETAL CHEST PAIN [None]
